FAERS Safety Report 13396792 (Version 1)
Quarter: 2017Q2

REPORT INFORMATION
  Report Type: Spontaneous
  Country: US (occurrence: US)
  Receive Date: 20170403
  Receipt Date: 20170403
  Transmission Date: 20170830
  Serious: Yes (Other)
  Sender: FDA-Public Use
  Company Number: None

PATIENT
  Age: 64 Year
  Sex: Female
  Weight: 117 kg

DRUGS (9)
  1. SIMVASTTIN [Concomitant]
  2. MELOXICAM. [Concomitant]
     Active Substance: MELOXICAM
  3. NALTREXONE [Concomitant]
     Active Substance: NALTREXONE
  4. BABY ASPIRIN [Concomitant]
     Active Substance: ASPIRIN
  5. ROPINIROLE. [Suspect]
     Active Substance: ROPINIROLE
     Indication: RESTLESS LEGS SYNDROME
     Dosage: ?          QUANTITY:1 TABLET(S);?
     Route: 048
     Dates: start: 20160217, end: 20170202
  6. BUPROPION. [Concomitant]
     Active Substance: BUPROPION
  7. LINSINOPRL [Concomitant]
  8. HYDROCHLOROTH [Concomitant]
     Active Substance: HYDROCHLOROTHIAZIDE
  9. TYLENOL [Concomitant]
     Active Substance: ACETAMINOPHEN

REACTIONS (2)
  - Gambling disorder [None]
  - Economic problem [None]

NARRATIVE: CASE EVENT DATE: 20160630
